FAERS Safety Report 5888934-2 (Version None)
Quarter: 2008Q3

REPORT INFORMATION
  Report Type: 
  Country: None (occurrence: None)
  Receive Date: 20080917
  Receipt Date: 20080917
  Transmission Date: 20090109
  Serious: Yes (Other)
  Sender: FDA-Public Use
  Company Number: None

PATIENT
  Age: 63 Year
  Sex: Female
  Weight: 83.9154 kg

DRUGS (2)
  1. LEVAQUIN [Suspect]
     Indication: CELLULITIS
     Dosage: 750 MG, 1 X PER DAY
     Dates: start: 20080804, end: 20080827
  2. AVELOX [Suspect]

REACTIONS (9)
  - DRUG INEFFECTIVE [None]
  - FATIGUE [None]
  - INSOMNIA [None]
  - MYALGIA [None]
  - MYOFASCIAL PAIN SYNDROME [None]
  - OROPHARYNGEAL PAIN [None]
  - PYREXIA [None]
  - SUICIDAL IDEATION [None]
  - TENDON PAIN [None]
